FAERS Safety Report 10470660 (Version 2)
Quarter: 2014Q3

REPORT INFORMATION
  Report Type: Spontaneous
  Country: US (occurrence: US)
  Receive Date: 20140923
  Receipt Date: 20140923
  Transmission Date: 20150326
  Serious: Yes (Death, Hospitalization)
  Sender: FDA-Public Use
  Company Number: US-GLAXOSMITHKLINE-A0798978A

PATIENT
  Sex: Male

DRUGS (1)
  1. AVANDIA [Suspect]
     Active Substance: ROSIGLITAZONE MALEATE
     Indication: DIABETES MELLITUS
     Dosage: 4MG PER DAY
     Route: 048
     Dates: start: 20050203, end: 20070420

REACTIONS (11)
  - Death [Fatal]
  - Carotid artery stenosis [Unknown]
  - Pleural effusion [Unknown]
  - Coronary artery disease [Unknown]
  - Ventricular tachycardia [Unknown]
  - Cerebral atrophy [Unknown]
  - Ischaemic cardiomyopathy [Unknown]
  - Myocardial infarction [Unknown]
  - Cardiac failure congestive [Unknown]
  - Transient ischaemic attack [Unknown]
  - Cerebrovascular accident [Unknown]
